FAERS Safety Report 9019455 (Version 2)
Quarter: 2013Q2

REPORT INFORMATION
  Report Type: Report from Study
  Country: PL (occurrence: PL)
  Receive Date: 20130118
  Receipt Date: 20130513
  Transmission Date: 20140414
  Serious: Yes (Life-Threatening, Hospitalization, Other)
  Sender: FDA-Public Use
  Company Number: PL-PFIZER INC-2012113784

PATIENT
  Age: 58 Year
  Sex: Male
  Weight: 98 kg

DRUGS (3)
  1. SUNITINIB MALATE [Suspect]
     Indication: RENAL CELL CARCINOMA
     Dosage: 37.5 MG, 1X/DAY, SCHEDULE 4/2
     Route: 048
     Dates: start: 20091109, end: 20101019
  2. POLOCARD [Concomitant]
     Indication: CARDIOVASCULAR EVENT PROPHYLAXIS
     Dosage: 150 MG, ONCE DAILY, EVERY DAY
     Route: 048
     Dates: start: 2009
  3. EBIVOL [Concomitant]
     Indication: HYPERTENSION
     Dosage: 5 MG, ONCE DAILY, EVERY DAY
     Route: 048
     Dates: start: 2009

REACTIONS (2)
  - Second primary malignancy [Recovering/Resolving]
  - Colon cancer [Recovering/Resolving]
